FAERS Safety Report 6680785-4 (Version None)
Quarter: 2010Q2

REPORT INFORMATION
  Report Type: 
  Country: None (occurrence: None)
  Receive Date: 20100414
  Receipt Date: 20100412
  Transmission Date: 20101027
  Serious: Yes (Death)
  Sender: FDA-Public Use
  Company Number: US-ASTRAZENECA-2009SE15052

PATIENT
  Sex: Male

DRUGS (3)
  1. SEROQUEL [Suspect]
     Route: 048
  2. RISPERDAL [Concomitant]
     Dates: start: 20080103
  3. CLOZAPINE [Concomitant]
     Dates: start: 20080110

REACTIONS (2)
  - DEATH [None]
  - DIABETES MELLITUS [None]
